FAERS Safety Report 17277146 (Version 1)
Quarter: 2020Q1

REPORT INFORMATION
  Report Type: Spontaneous
  Country: US (occurrence: US)
  Receive Date: 20200116
  Receipt Date: 20200116
  Transmission Date: 20200409
  Serious: No
  Sender: FDA-Public Use
  Company Number: US-ELI_LILLY_AND_COMPANY-US202001006956

PATIENT
  Age: 46 Year
  Sex: Female

DRUGS (3)
  1. AMITRIPTYLINE [Concomitant]
     Active Substance: AMITRIPTYLINE
  2. TOPIRAMATE. [Concomitant]
     Active Substance: TOPIRAMATE
  3. EMGALITY [Suspect]
     Active Substance: GALCANEZUMAB-GNLM
     Indication: MIGRAINE
     Dosage: 120 MG, UNKNOWN
     Route: 058
     Dates: start: 201912

REACTIONS (3)
  - Injection site pain [Unknown]
  - Underdose [Unknown]
  - Injection site bruising [Unknown]

NARRATIVE: CASE EVENT DATE: 201912
